FAERS Safety Report 12698168 (Version 2)
Quarter: 2021Q3

REPORT INFORMATION
  Report Type: Spontaneous
  Country: US (occurrence: US)
  Receive Date: 20160830
  Receipt Date: 20210901
  Transmission Date: 20211014
  Serious: Yes (Other)
  Sender: FDA-Public Use
  Company Number: US-JNJFOC-20160805179

PATIENT
  Age: 34 Year

DRUGS (4)
  1. RISPERDAL CONSTA [Suspect]
     Active Substance: RISPERIDONE
     Indication: PRODUCT USED FOR UNKNOWN INDICATION
     Route: 030
  2. RISPERDAL CONSTA [Suspect]
     Active Substance: RISPERIDONE
  3. RISPERDAL CONSTA [Suspect]
     Active Substance: RISPERIDONE
  4. RISPERDAL CONSTA [Suspect]
     Active Substance: RISPERIDONE

REACTIONS (7)
  - Decreased appetite [Unknown]
  - Dyskinesia [Unknown]
  - Visual impairment [Not Recovered/Not Resolved]
  - Gingival disorder [Unknown]
  - Hypokinesia [Unknown]
  - Incorrect dose administered [Unknown]
  - Off label use [Unknown]
